FAERS Safety Report 25798943 (Version 2)
Quarter: 2025Q3

REPORT INFORMATION
  Report Type: Spontaneous
  Country: IL (occurrence: IL)
  Receive Date: 20250913
  Receipt Date: 20250926
  Transmission Date: 20251021
  Serious: Yes (Hospitalization, Other)
  Sender: USV PRIVATE LIMITED
  Company Number: IL-USV-003738

PATIENT
  Age: 35 Year
  Sex: Female

DRUGS (3)
  1. ZOLEDRONIC ACID [Suspect]
     Active Substance: ZOLEDRONIC ACID
     Indication: Metastatic bone disease prophylaxis
     Route: 042
  2. LANREOTIDE [Concomitant]
     Active Substance: LANREOTIDE
     Indication: Musculoskeletal cancer
  3. LEVOTHYROXINE [Concomitant]
     Active Substance: LEVOTHYROXINE
     Indication: Papillary thyroid cancer

REACTIONS (1)
  - Myocarditis [Recovered/Resolved]
